FAERS Safety Report 8462223-4 (Version None)
Quarter: 2012Q2

REPORT INFORMATION
  Report Type: 
  Country: None (occurrence: None)
  Receive Date: 20120625
  Receipt Date: 20120614
  Transmission Date: 20120825
  Serious: Yes (Hospitalization, Other)
  Sender: FDA-Public Use
  Company Number: US-SANOFI-AVENTIS-2012SA020336

PATIENT
  Age: 52 Year
  Sex: Female
  Weight: 85.5 kg

DRUGS (2)
  1. PERCOCET [Concomitant]
     Dates: start: 20100501
  2. LOVENOX [Suspect]
     Indication: PROPHYLAXIS
     Dates: start: 20100604, end: 20100607

REACTIONS (10)
  - FUNGAL INFECTION [None]
  - SKIN EXFOLIATION [None]
  - PAIN [None]
  - SKIN SWELLING [None]
  - CELLULITIS [None]
  - INJECTION SITE NECROSIS [None]
  - HYPERAESTHESIA [None]
  - SKIN MASS [None]
  - ERYTHEMA [None]
  - SKIN WARM [None]
